FAERS Safety Report 10956928 (Version 1)
Quarter: 2015Q1

REPORT INFORMATION
  Report Type: Spontaneous
  Country: US (occurrence: US)
  Receive Date: 20150326
  Receipt Date: 20150326
  Transmission Date: 20150721
  Serious: No
  Sender: FDA-Public Use
  Company Number: US-MYLANLABS-2014S1002549

PATIENT
  Sex: Female

DRUGS (7)
  1. SOTALOL. [Suspect]
     Active Substance: SOTALOL
  2. EPLERENONE. [Suspect]
     Active Substance: EPLERENONE
     Indication: HYPERALDOSTERONISM
     Dosage: 25 MG,BID
     Dates: start: 2010
  3. CITRACAL /00751520/ [Concomitant]
     Indication: OSTEOPOROSIS
     Dosage: 600 MG,BID
  4. KONSYL [Concomitant]
     Indication: BOWEL MOVEMENT IRREGULARITY
     Dosage: UNK
  5. LISINOPRIL. [Suspect]
     Active Substance: LISINOPRIL
  6. COREG [Suspect]
     Active Substance: CARVEDILOL
     Indication: CARDIOMYOPATHY
     Dosage: 25 MG,BID
     Dates: start: 2006
  7. DIOVAN [Suspect]
     Active Substance: VALSARTAN
     Indication: CARDIOMYOPATHY
     Dosage: 80 MG,BID
     Dates: start: 2006

REACTIONS (1)
  - Drug interaction [Not Recovered/Not Resolved]
